FAERS Safety Report 15101733 (Version 6)
Quarter: 2021Q1

REPORT INFORMATION
  Report Type: Spontaneous
  Country: JP (occurrence: JP)
  Receive Date: 20180703
  Receipt Date: 20210323
  Transmission Date: 20210419
  Serious: Yes (Life-Threatening, Hospitalization, Other)
  Sender: FDA-Public Use
  Company Number: JP-BRISTOL-MYERS SQUIBB COMPANY-BMS-2018-061538

PATIENT
  Age: 50 Year
  Sex: Male

DRUGS (2)
  1. PAZOPANIB [Suspect]
     Active Substance: PAZOPANIB
     Indication: METASTATIC RENAL CELL CARCINOMA
     Route: 065
  2. OPDIVO [Suspect]
     Active Substance: NIVOLUMAB
     Indication: METASTATIC RENAL CELL CARCINOMA
     Route: 041

REACTIONS (5)
  - Pancreatitis [Unknown]
  - Multiple organ dysfunction syndrome [Unknown]
  - Colitis [Unknown]
  - Rhabdomyolysis [Unknown]
  - Liver disorder [Unknown]
